FAERS Safety Report 22318948 (Version 1)
Quarter: 2023Q2

REPORT INFORMATION
  Report Type: Spontaneous
  Country: CA (occurrence: CA)
  Receive Date: 20230515
  Receipt Date: 20230515
  Transmission Date: 20230722
  Serious: Yes (Other)
  Sender: FDA-Public Use
  Company Number: CA-AMGEN-CANSP2023080356

PATIENT
  Sex: Female

DRUGS (2)
  1. PROLIA [Suspect]
     Active Substance: DENOSUMAB
     Indication: Osteoporosis postmenopausal
     Dosage: 60 MILLIGRAM, Q6MO
     Route: 065
  2. PROLIA [Suspect]
     Active Substance: DENOSUMAB
     Dosage: 30 MILLIGRAM, Q6MO
     Route: 065

REACTIONS (6)
  - Spinal deformity [Unknown]
  - Off label use [Unknown]
  - Adverse drug reaction [Unknown]
  - Fracture [Unknown]
  - Body height decreased [Unknown]
  - Back pain [Unknown]
